FAERS Safety Report 13472387 (Version 1)
Quarter: 2017Q2

REPORT INFORMATION
  Report Type: Spontaneous
  Country: US (occurrence: US)
  Receive Date: 20170422
  Receipt Date: 20170422
  Transmission Date: 20170830
  Serious: Yes (Other)
  Sender: FDA-Public Use
  Company Number: None

PATIENT
  Age: 22 Year
  Sex: Female
  Weight: 69 kg

DRUGS (2)
  1. TRIBEDOCE [Concomitant]
  2. GRANEODIN B [Suspect]
     Active Substance: BENZOCAINE HYDROCHLORIDE
     Indication: PRODUCT USED FOR UNKNOWN INDICATION
     Dosage: ?          QUANTITY:24 PILL;?
     Route: 048

REACTIONS (2)
  - Lip dry [None]
  - Mouth ulceration [None]

NARRATIVE: CASE EVENT DATE: 20170420
